FAERS Safety Report 8045413-4 (Version None)
Quarter: 2012Q1

REPORT INFORMATION
  Report Type: 
  Country: None (occurrence: None)
  Receive Date: 20120113
  Receipt Date: 20120109
  Transmission Date: 20120608
  Serious: Yes (Death, Congenital Anomaly)
  Sender: FDA-Public Use
  Company Number: US-UCBSA-049431

PATIENT

DRUGS (1)
  1. KEPPRA [Suspect]
     Indication: EPILEPSY
     Dosage: 500 MG
     Route: 064
     Dates: start: 20050101, end: 20060101

REACTIONS (2)
  - POTTER'S SYNDROME [None]
  - FOETAL EXPOSURE DURING PREGNANCY [None]
